FAERS Safety Report 5993545-4 (Version None)
Quarter: 2008Q4

REPORT INFORMATION
  Report Type: 
  Country: None (occurrence: None)
  Receive Date: 20081212
  Receipt Date: 20081202
  Transmission Date: 20090506
  Serious: Yes (Life-Threatening, Other)
  Sender: FDA-Public Use
  Company Number: PHHY2008DE22566

PATIENT
  Sex: Male
  Weight: 96 kg

DRUGS (6)
  1. EUCREAS [Suspect]
     Indication: TYPE 2 DIABETES MELLITUS
     Dosage: 1000/50 OR 850/50, 1 DF BID
     Dates: start: 20080521
  2. ALLOPURINOL AL 300 [Concomitant]
     Dosage: 300 MG, 0.5 DF EVERY DAY
  3. SIMVABETA [Concomitant]
     Dosage: 40 MG, 0.25 DF EVERY DAY
  4. BISOPROLOL FUMARATE [Concomitant]
     Dosage: 10 MG, 1 DF EVERY DAY
  5. HCT 25 [Concomitant]
     Dosage: 0.25 DF/DAY
  6. MARCUMAR [Concomitant]

REACTIONS (17)
  - ARTHRALGIA [None]
  - ATRIAL FIBRILLATION [None]
  - BLOOD GLUCOSE INCREASED [None]
  - BLOOD TRIGLYCERIDES INCREASED [None]
  - CAROTID ARTERY STENOSIS [None]
  - CHEST DISCOMFORT [None]
  - DYSPNOEA EXERTIONAL [None]
  - HAEMOGLOBIN DECREASED [None]
  - HIGH DENSITY LIPOPROTEIN DECREASED [None]
  - LYMPHOCYTE PERCENTAGE INCREASED [None]
  - MUSCULAR WEAKNESS [None]
  - N-TERMINAL PROHORMONE BRAIN NATRIURETIC PEPTIDE [None]
  - PAIN IN EXTREMITY [None]
  - PALPITATIONS [None]
  - PERFORMANCE STATUS DECREASED [None]
  - RED BLOOD CELL SEDIMENTATION RATE INCREASED [None]
  - THROMBOCYTOPENIA [None]
